FAERS Safety Report 6198692-2 (Version None)
Quarter: 2009Q2

REPORT INFORMATION
  Report Type: 
  Country: None (occurrence: None)
  Receive Date: 20090519
  Receipt Date: 20090519
  Transmission Date: 20091009
  Serious: Yes (Hospitalization)
  Sender: FDA-Public Use
  Company Number: None

PATIENT
  Age: 68 Year
  Sex: Female
  Weight: 83.9154 kg

DRUGS (3)
  1. ABRAXANE [Suspect]
     Indication: NON-SMALL CELL LUNG CANCER
     Dosage: 125 MG 1X PER WEEK IV
     Route: 042
     Dates: start: 20090407, end: 20090512
  2. CARBOPLATIN [Suspect]
     Dosage: 213 MG 1X PER WEEK IV
     Route: 042
     Dates: start: 20090407, end: 20090512
  3. XRT [Concomitant]

REACTIONS (7)
  - ABDOMINAL PAIN UPPER [None]
  - CHEST PAIN [None]
  - DRUG TOXICITY [None]
  - DYSPHAGIA [None]
  - HYPOPHAGIA [None]
  - OROPHARYNGEAL PAIN [None]
  - THERAPEUTIC AGENT TOXICITY [None]
